FAERS Safety Report 15114810 (Version 1)
Quarter: 2018Q3

REPORT INFORMATION
  Report Type: Spontaneous
  Country: PH (occurrence: PH)
  Receive Date: 20180706
  Receipt Date: 20180706
  Transmission Date: 20181010
  Serious: Yes (Death, Hospitalization, Other)
  Sender: FDA-Public Use
  Company Number: PH-GILEAD-2018-0348598

PATIENT
  Age: 54 Year
  Sex: Male

DRUGS (2)
  1. AMINOLEBAN EN [Suspect]
     Active Substance: UNSPECIFIED INGREDIENT
     Indication: LIVER DISORDER
     Dosage: UNK, BID
     Route: 048
     Dates: start: 20180101, end: 20180311
  2. VIREAD [Suspect]
     Active Substance: TENOFOVIR DISOPROXIL FUMARATE
     Indication: HEPATITIS
     Dosage: UNK
     Route: 065
     Dates: end: 20180311

REACTIONS (3)
  - Abdominal distension [Unknown]
  - Hepatic cirrhosis [Fatal]
  - Abdominal pain upper [Unknown]

NARRATIVE: CASE EVENT DATE: 201709
